FAERS Safety Report 11871021 (Version 1)
Quarter: 2015Q4

REPORT INFORMATION
  Report Type: Spontaneous
  Country: JP (occurrence: JP)
  Receive Date: 20151228
  Receipt Date: 20151228
  Transmission Date: 20160305
  Serious: Yes (Other)
  Sender: FDA-Public Use
  Company Number: JP-PFIZER INC-2015453414

PATIENT
  Age: 6 Decade
  Sex: Female

DRUGS (1)
  1. JZOLOFT [Suspect]
     Active Substance: SERTRALINE HYDROCHLORIDE
     Dosage: 25 MG, DAILY
     Route: 048

REACTIONS (2)
  - Dementia with Lewy bodies [Unknown]
  - Rapid eye movements sleep abnormal [Unknown]
